FAERS Safety Report 9331086 (Version 1)
Quarter: 2013Q2

REPORT INFORMATION
  Report Type: Report from Study
  Country: US (occurrence: US)
  Receive Date: 20130605
  Receipt Date: 20130605
  Transmission Date: 20140414
  Serious: Yes (Other)
  Sender: FDA-Public Use
  Company Number: US-SANOFI-AVENTIS-2013SA056111

PATIENT
  Age: 67 Year
  Sex: Female

DRUGS (4)
  1. AUBAGIO [Suspect]
     Indication: MULTIPLE SCLEROSIS
     Route: 048
     Dates: start: 20130428, end: 20130502
  2. COPAXONE [Concomitant]
  3. AVONEX [Concomitant]
  4. POTASSIUM CHLORIDE/SODIUM CARBONATE ANHYDROUS/SODIUM CHLORIDE/ALBUMIN NORMAL HUMAN SERUM/BETA-GLOBUL [Concomitant]

REACTIONS (2)
  - Kidney infection [Not Recovered/Not Resolved]
  - Cystitis [Not Recovered/Not Resolved]
